FAERS Safety Report 9746972 (Version 1)
Quarter: 2013Q4

REPORT INFORMATION
  Report Type: Report from Study
  Country: BE (occurrence: BE)
  Receive Date: 20131211
  Receipt Date: 20131211
  Transmission Date: 20140711
  Serious: Yes (Hospitalization)
  Sender: FDA-Public Use
  Company Number: BE-ABBVIE-13P-013-1175935-00

PATIENT
  Age: 78 Year
  Sex: Female

DRUGS (10)
  1. HUMIRA [Suspect]
     Indication: RHEUMATOID ARTHRITIS
     Route: 050
     Dates: start: 20110523
  2. TIMOLOL [Concomitant]
     Indication: GLAUCOMA
  3. CLOXAZOLAM [Concomitant]
     Indication: INSOMNIA
  4. BISOPROLOL [Concomitant]
     Indication: HYPERTENSION
  5. LIPITOR [Concomitant]
     Indication: HYPERCHOLESTEROLAEMIA
  6. LORMETAZEPAM [Concomitant]
     Indication: INSOMNIA
  7. MEDROL [Concomitant]
     Indication: RHEUMATOID ARTHRITIS
     Dates: start: 20130308
  8. PANTOPRAZOL [Concomitant]
     Indication: PRODUCT USED FOR UNKNOWN INDICATION
  9. SIPRALEXA [Concomitant]
     Indication: INSOMNIA
  10. CLOPIDOGREL [Concomitant]
     Indication: EMBOLISM

REACTIONS (2)
  - Ischaemic stroke [Recovering/Resolving]
  - Aphasia [Recovering/Resolving]
